FAERS Safety Report 6675293-0 (Version None)
Quarter: 2010Q2

REPORT INFORMATION
  Report Type: 
  Country: None (occurrence: None)
  Receive Date: 20100409
  Receipt Date: 20100318
  Transmission Date: 20101027
  Serious: No
  Sender: FDA-Public Use
  Company Number: A0839453A

PATIENT
  Age: 58 Year
  Sex: Female
  Weight: 77.3 kg

DRUGS (3)
  1. TYKERB [Suspect]
     Indication: BREAST CANCER
     Dosage: 5TAB PER DAY
     Route: 048
     Dates: start: 20100106, end: 20100204
  2. XELODA [Suspect]
     Indication: BREAST CANCER
     Dates: start: 20100106, end: 20100201
  3. ZOFRAN [Concomitant]
     Indication: NAUSEA

REACTIONS (12)
  - DERMATITIS [None]
  - HEADACHE [None]
  - HYPERAESTHESIA [None]
  - JOINT SWELLING [None]
  - NAUSEA [None]
  - RASH [None]
  - RASH ERYTHEMATOUS [None]
  - RASH PRURITIC [None]
  - STOMATITIS [None]
  - URTICARIA [None]
  - WEIGHT DECREASED [None]
  - WEIGHT INCREASED [None]
